FAERS Safety Report 14194935 (Version 1)
Quarter: 2017Q4

REPORT INFORMATION
  Report Type: Spontaneous
  Country: US (occurrence: US)
  Receive Date: 20171116
  Receipt Date: 20171116
  Transmission Date: 20180321
  Serious: No
  Sender: FDA-Public Use
  Company Number: US-AMGEN-USASP2017171783

PATIENT
  Age: 62 Year
  Sex: Male

DRUGS (1)
  1. ENBREL [Suspect]
     Active Substance: ETANERCEPT
     Indication: PSORIASIS
     Dosage: UNK UNK, QWK
     Route: 065
     Dates: start: 2012

REACTIONS (6)
  - Pruritus [Unknown]
  - Bronchitis [Not Recovered/Not Resolved]
  - Erythema [Not Recovered/Not Resolved]
  - Scab [Recovered/Resolved]
  - Exfoliative rash [Recovered/Resolved]
  - Injection site pain [Unknown]

NARRATIVE: CASE EVENT DATE: 2017
